FAERS Safety Report 4802697-0 (Version None)
Quarter: 2005Q4

REPORT INFORMATION
  Report Type: 
  Country: None (occurrence: None)
  Receive Date: 20051014
  Receipt Date: 20050728
  Transmission Date: 20060501
  Serious: Yes (Other)
  Sender: FDA-Public Use
  Company Number: 2005108184

PATIENT
  Age: 50 Year
  Sex: Male

DRUGS (2)
  1. NEURONTIN [Suspect]
     Indication: BACK PAIN
     Dates: start: 20010101
  2. NEURONTIN [Suspect]
     Indication: EPILEPSY
     Dates: start: 20010101

REACTIONS (5)
  - BACK PAIN [None]
  - CERVICOBRACHIAL SYNDROME [None]
  - DEPRESSION [None]
  - SUICIDAL IDEATION [None]
  - SUICIDE ATTEMPT [None]
